FAERS Safety Report 10368111 (Version 1)
Quarter: 2014Q3

REPORT INFORMATION
  Report Type: Spontaneous
  Country: US (occurrence: None)
  Receive Date: 20140805
  Receipt Date: 20140805
  Transmission Date: 20150326
  Serious: Yes (Death, Other)
  Sender: FDA-Public Use
  Company Number: SYM-2014-23768

PATIENT
  Age: 66 Year
  Sex: Female

DRUGS (1)
  1. XENAZINE [Suspect]
     Active Substance: TETRABENAZINE
     Indication: DYSKINESIA
     Dosage: 50 MG, 2 IN 1 D, ORAL
     Route: 048
     Dates: start: 20121205

REACTIONS (1)
  - Death [None]

NARRATIVE: CASE EVENT DATE: 201407
